FAERS Safety Report 5005109-X (Version None)
Quarter: 2006Q2

REPORT INFORMATION
  Report Type: 
  Country: None (occurrence: None)
  Receive Date: 20060516
  Receipt Date: 20060516
  Transmission Date: 20061013
  Serious: Yes (Death, Hospitalization)
  Sender: FDA-Public Use
  Company Number: None

PATIENT
  Age: 59 Year
  Sex: Female
  Weight: 61.9 kg

DRUGS (2)
  1. FLUDARABINE [Suspect]
     Indication: MULTIPLE MYELOMA
     Dosage: 57MG  QD IV
     Route: 042
     Dates: start: 20060125, end: 20060129
  2. CYTOXAN [Suspect]
     Dosage: 1.62G  QD IV
     Route: 042
     Dates: start: 20060130, end: 20060131

REACTIONS (3)
  - ABDOMINAL PAIN [None]
  - GENERAL PHYSICAL HEALTH DETERIORATION [None]
  - MYELOMA RECURRENCE [None]
